FAERS Safety Report 6139218-9 (Version None)
Quarter: 2009Q2

REPORT INFORMATION
  Report Type: 
  Country: None (occurrence: None)
  Receive Date: 20090401
  Receipt Date: 20090326
  Transmission Date: 20091009
  Serious: Yes (Hospitalization, Other)
  Sender: FDA-Public Use
  Company Number: JP-JNJFOC-20090301589

PATIENT
  Age: 50 Year
  Sex: Male

DRUGS (4)
  1. RISPERDAL [Suspect]
     Route: 048
  2. RISPERDAL [Suspect]
     Indication: SCHIZOPHRENIA
     Dosage: AS REQUIRED
     Route: 048
  3. DEPAKENE [Suspect]
     Indication: CYCLOTHYMIC DISORDER
     Route: 048
  4. SEROQUEL [Concomitant]
     Indication: SCHIZOPHRENIA
     Route: 048

REACTIONS (3)
  - HOSPITALISATION [None]
  - LEUKOPENIA [None]
  - NEUTROPENIA [None]
